FAERS Safety Report 22048534 (Version 1)
Quarter: 2023Q1

REPORT INFORMATION
  Report Type: Spontaneous
  Country: US (occurrence: US)
  Receive Date: 20230301
  Receipt Date: 20230301
  Transmission Date: 20230417
  Serious: No
  Sender: FDA-Public Use
  Company Number: US-DSJP-DSU-2023-107116

PATIENT
  Sex: Female

DRUGS (1)
  1. ENHERTU [Suspect]
     Active Substance: FAM-TRASTUZUMAB DERUXTECAN-NXKI
     Indication: Breast cancer metastatic
     Dosage: APPROX 150MG
     Route: 042
     Dates: start: 20220516

REACTIONS (2)
  - Flushing [Recovered/Resolved]
  - Restlessness [Recovered/Resolved]
